FAERS Safety Report 5557812-0 (Version None)
Quarter: 2007Q4

REPORT INFORMATION
  Report Type: 
  Country: None (occurrence: None)
  Receive Date: 20071214
  Receipt Date: 20071205
  Transmission Date: 20080405
  Serious: Yes (Hospitalization)
  Sender: FDA-Public Use
  Company Number: US-MERCK-0712USA02088

PATIENT
  Age: 68 Year
  Sex: Male

DRUGS (5)
  1. FOSAMAX [Suspect]
     Route: 048
  2. ASPIRIN [Suspect]
     Route: 065
  3. PLAVIX [Suspect]
     Route: 065
  4. COREG [Concomitant]
     Route: 065
  5. ALTACE [Concomitant]
     Route: 048

REACTIONS (3)
  - ANGINA UNSTABLE [None]
  - GASTRITIS HAEMORRHAGIC [None]
  - PEPTIC ULCER HAEMORRHAGE [None]
